FAERS Safety Report 10178780 (Version 1)
Quarter: 2014Q2

REPORT INFORMATION
  Report Type: Spontaneous
  Country: US (occurrence: None)
  Receive Date: 20140516
  Receipt Date: 20140516
  Transmission Date: 20141212
  Serious: No
  Sender: FDA-Public Use
  Company Number: None

PATIENT
  Age: 71 Year
  Sex: Female
  Weight: 54.43 kg

DRUGS (9)
  1. RECLAST [Suspect]
     Dosage: GIVE 1X YEAR (ONE DOSE)?
     Dates: start: 20140402
  2. ANASTROZOLE [Concomitant]
  3. RESTASIS OPTH [Concomitant]
  4. TIMOLOL EYE DROPS [Concomitant]
  5. ATAVAN [Concomitant]
  6. VIT B3 (1000IU) [Concomitant]
  7. CALCIUM 600MG + VIT D [Concomitant]
  8. SALMON OIL 1000MG [Concomitant]
  9. FLAX OIL 1000 MG [Concomitant]

REACTIONS (6)
  - Tremor [None]
  - Feeling jittery [None]
  - Heart rate irregular [None]
  - Anxiety [None]
  - Hypoaesthesia [None]
  - Paraesthesia [None]
